FAERS Safety Report 4659861-3 (Version None)
Quarter: 2005Q2

REPORT INFORMATION
  Report Type: 
  Country: None (occurrence: None)
  Receive Date: 20050510
  Receipt Date: 20050427
  Transmission Date: 20051028
  Serious: Yes (Hospitalization)
  Sender: FDA-Public Use
  Company Number: HQWYE422528APR05

PATIENT
  Age: 86 Year
  Sex: Female

DRUGS (1)
  1. CORDARONE [Suspect]
     Dosage: 200 MG TABLET (DOSE AND FREQUENCY UNSPECIFIED) ORAL
     Route: 048
     Dates: end: 20040213

REACTIONS (3)
  - BRONCHITIS [None]
  - PULMONARY FIBROSIS [None]
  - PYREXIA [None]
